FAERS Safety Report 17395676 (Version 3)
Quarter: 2020Q1

REPORT INFORMATION
  Report Type: Report from Study
  Country: US (occurrence: US)
  Receive Date: 20200210
  Receipt Date: 20200214
  Transmission Date: 20200409
  Serious: Yes (Hospitalization, Other)
  Sender: FDA-Public Use
  Company Number: US-PHARMING-PHAUS2020000039

PATIENT

DRUGS (2)
  1. RUCONEST [Suspect]
     Active Substance: HUMAN C1-ESTERASE INHIBITOR
     Dosage: 2735 IU INTERNATIONAL UNIT(S), 2X
     Route: 042
     Dates: start: 20200124, end: 20200124
  2. RUCONEST [Suspect]
     Active Substance: HUMAN C1-ESTERASE INHIBITOR
     Indication: DELAYED GRAFT FUNCTION
     Dosage: 5470 IU INTERNATIONAL UNIT(S), 1X
     Route: 042
     Dates: start: 20200123, end: 20200123

REACTIONS (13)
  - Decreased appetite [Unknown]
  - Intentional product misuse [Recovered/Resolved]
  - Vomiting [Not Recovered/Not Resolved]
  - Gallbladder disorder [Unknown]
  - Product use in unapproved indication [Unknown]
  - Hepatic fibrosis [Unknown]
  - Dizziness [Unknown]
  - Diarrhoea [Unknown]
  - Dehydration [Unknown]
  - Nausea [Unknown]
  - Overdose [Recovered/Resolved]
  - Malaise [Unknown]
  - Lymphocele [Unknown]

NARRATIVE: CASE EVENT DATE: 20200123
